FAERS Safety Report 6654385-6 (Version None)
Quarter: 2010Q1

REPORT INFORMATION
  Report Type: 
  Country: None (occurrence: None)
  Receive Date: 20100326
  Receipt Date: 20100318
  Transmission Date: 20100710
  Serious: Yes (Other)
  Sender: FDA-Public Use
  Company Number: JP-PFIZER INC-2010030718

PATIENT
  Age: 74 Year
  Sex: Female

DRUGS (9)
  1. NORVASC [Suspect]
     Indication: HYPERTENSION
     Dosage: 5 MG DAILY
     Route: 048
  2. OMEPRAL [Concomitant]
     Dosage: UNK
     Route: 048
  3. SANDONORM [Concomitant]
     Dosage: UNK
     Route: 048
  4. CANDESARTAN CILEXETIL [Concomitant]
     Indication: HYPERTENSION
     Dosage: 8 MG, DAILY
     Route: 048
  5. FLUVASTATIN [Concomitant]
     Dosage: UNK
     Route: 048
  6. CARVEDILOL [Concomitant]
     Dosage: UNK
     Route: 048
  7. ASPIRIN [Concomitant]
     Dosage: UNK
     Route: 048
  8. SIGMART [Concomitant]
     Dosage: UNK
     Route: 048
  9. ITOROL [Concomitant]
     Dosage: UNK
     Route: 048

REACTIONS (1)
  - CHROMATURIA [None]
